FAERS Safety Report 6991769-0 (Version None)
Quarter: 2010Q3

REPORT INFORMATION
  Report Type: 
  Country: None (occurrence: None)
  Receive Date: 20100917
  Receipt Date: 20100911
  Transmission Date: 20110219
  Serious: No
  Sender: FDA-Public Use
  Company Number: US-PFIZER INC-2010115599

PATIENT
  Sex: Male
  Weight: 83.9 kg

DRUGS (2)
  1. CHANTIX [Suspect]
     Indication: SMOKING CESSATION THERAPY
     Dosage: 0.5 MG, 1X/DAY
     Route: 048
     Dates: start: 20100818
  2. CHANTIX [Suspect]
     Dosage: 1 MG, 2X/DAY
     Route: 048

REACTIONS (2)
  - EYE SWELLING [None]
  - OCULAR HYPERAEMIA [None]
